FAERS Safety Report 9314814 (Version 1)
Quarter: 2013Q2

REPORT INFORMATION
  Report Type: Spontaneous
  Country: US (occurrence: US)
  Receive Date: 20130529
  Receipt Date: 20130529
  Transmission Date: 20140414
  Serious: Yes (Other)
  Sender: FDA-Public Use
  Company Number: US-PFIZER INC-2013163077

PATIENT
  Age: 56 Year
  Sex: Female
  Weight: 86.17 kg

DRUGS (1)
  1. MORPHINE SULFATE [Suspect]
     Dosage: UNK
     Dates: start: 201305

REACTIONS (2)
  - Suicidal ideation [Unknown]
  - Drug ineffective [Unknown]
